FAERS Safety Report 4291367-6 (Version None)
Quarter: 2004Q1

REPORT INFORMATION
  Report Type: 
  Country: None (occurrence: None)
  Receive Date: 20040206
  Receipt Date: 20040206
  Transmission Date: 20041129
  Serious: Yes (Other)
  Sender: FDA-Public Use
  Company Number: None

PATIENT
  Age: 43 Year
  Sex: Female
  Weight: 59.8748 kg

DRUGS (2)
  1. VIT D 25 50,000 IV (PLIVA) [Suspect]
     Indication: OSTEOPOROSIS
     Dosage: ABOVE ONCE/WK PO
     Route: 048
     Dates: start: 20031120
  2. VIT D 25 50,000 IV (PLIVA) [Suspect]
     Indication: VITAMIN D DECREASED
     Dosage: ABOVE ONCE/WK PO
     Route: 048
     Dates: start: 20031120

REACTIONS (5)
  - DIARRHOEA [None]
  - HEADACHE [None]
  - NECK PAIN [None]
  - PRURITUS [None]
  - TOOTHACHE [None]
